FAERS Safety Report 11119333 (Version 1)
Quarter: 2015Q2

REPORT INFORMATION
  Report Type: Spontaneous
  Country: US (occurrence: None)
  Receive Date: 20150515
  Receipt Date: 20150515
  Transmission Date: 20150821
  Serious: No
  Sender: FDA-Public Use
  Company Number: None

PATIENT
  Sex: Female

DRUGS (4)
  1. SOVALDI [Suspect]
     Active Substance: SOFOSBUVIR
     Indication: CHRONIC HEPATITIS C
     Dosage: SOLVALDI 400MG 1 TAB QD PO
     Route: 048
     Dates: start: 20150227
  2. RIBAVIRIN 200MG ZYDUS [Suspect]
     Active Substance: RIBAVIRIN
     Dosage: 3 TAB QAM, 2 TAB QPM
     Route: 048
     Dates: start: 20150227
  3. PROMETRIUM [Concomitant]
     Active Substance: PROGESTERONE
  4. LISINOPRIL. [Concomitant]
     Active Substance: LISINOPRIL

REACTIONS (1)
  - Fatigue [None]
